FAERS Safety Report 18088875 (Version 1)
Quarter: 2020Q3

REPORT INFORMATION
  Report Type: Spontaneous
  Country: CN (occurrence: CN)
  Receive Date: 20200729
  Receipt Date: 20200729
  Transmission Date: 20201103
  Serious: Yes (Hospitalization)
  Sender: FDA-Public Use
  Company Number: NVSC2020CN210124

PATIENT
  Age: 79 Year
  Sex: Male
  Weight: 70 kg

DRUGS (2)
  1. REVOLADE [Suspect]
     Active Substance: ELTROMBOPAG
     Indication: PLATELET COUNT INCREASED
     Dosage: 25 MG, QD
     Route: 048
     Dates: start: 20200424, end: 20200507
  2. DEXAMETHASONE SODIUM PHOSPHATE. [Concomitant]
     Active Substance: DEXAMETHASONE SODIUM PHOSPHATE
     Indication: IMMUNE SYSTEM DISORDER
     Dosage: 10 MG, QD
     Route: 041
     Dates: start: 20200424, end: 20200507

REACTIONS (1)
  - Transaminases increased [Recovering/Resolving]

NARRATIVE: CASE EVENT DATE: 20200502
